FAERS Safety Report 10640630 (Version 1)
Quarter: 2014Q4

REPORT INFORMATION
  Report Type: Spontaneous
  Country: FR (occurrence: FR)
  Receive Date: 20141209
  Receipt Date: 20141209
  Transmission Date: 20150529
  Serious: Yes (Other)
  Sender: FDA-Public Use
  Company Number: FR-JNJFOC-20141119154

PATIENT

DRUGS (1)
  1. RILPIVIRINE [Suspect]
     Active Substance: RILPIVIRINE
     Indication: HIV INFECTION
     Route: 048

REACTIONS (5)
  - Rash [Unknown]
  - Blood creatinine increased [Unknown]
  - Psychiatric symptom [Unknown]
  - Gastrointestinal disorder [Unknown]
  - Virologic failure [Unknown]
